FAERS Safety Report 19928744 (Version 1)
Quarter: 2021Q4

REPORT INFORMATION
  Report Type: Spontaneous
  Country: KR (occurrence: KR)
  Receive Date: 20211007
  Receipt Date: 20211007
  Transmission Date: 20220303
  Serious: Yes (Hospitalization, Other)
  Sender: FDA-Public Use
  Company Number: KR-VIIV HEALTHCARE ULC-KR2021APC203853

PATIENT
  Age: 69 Year
  Sex: Female

DRUGS (6)
  1. KIVEXA [Suspect]
     Active Substance: ABACAVIR SULFATE\LAMIVUDINE
     Indication: HIV infection
     Dosage: 1 DF, QD
     Route: 048
     Dates: start: 20130520
  2. ASPIRIN [Concomitant]
     Active Substance: ASPIRIN
     Indication: Artery dissection
     Dosage: 100 MG, QD,TABLET, FILM-COATED, DELAYED RELEASE
     Route: 048
     Dates: start: 20090810
  3. AMITRIPTYLINE [Concomitant]
     Active Substance: AMITRIPTYLINE
     Indication: Artery dissection
     Dosage: 10 MG, QD
     Dates: start: 20080715, end: 20130810
  4. CARBOCYSTEINE [Concomitant]
     Active Substance: CARBOCYSTEINE
     Indication: Cough
     Dosage: 500 MG, QD
     Route: 048
     Dates: start: 20070321
  5. FENOFIBRATE [Concomitant]
     Active Substance: FENOFIBRATE
     Indication: Artery dissection
     Dosage: 160 MG, QD
     Route: 048
     Dates: start: 20130529
  6. ITOPRIDE [Concomitant]
     Active Substance: ITOPRIDE
     Indication: Product used for unknown indication
     Dosage: 50 MG, QD
     Route: 048
     Dates: start: 20090807

REACTIONS (1)
  - Dementia [Recovered/Resolved]

NARRATIVE: CASE EVENT DATE: 20130805
